FAERS Safety Report 5328733-3 (Version None)
Quarter: 2007Q2

REPORT INFORMATION
  Report Type: 
  Country: None (occurrence: None)
  Receive Date: 20070518
  Receipt Date: 20070508
  Transmission Date: 20071010
  Serious: Yes (Hospitalization)
  Sender: FDA-Public Use
  Company Number: US-JNJFOC-20070404287

PATIENT
  Sex: Male
  Weight: 16.7 kg

DRUGS (3)
  1. TOPAMAX [Suspect]
     Indication: EPILEPSY
     Dosage: 2- 50 MG TABLETS AM AND 3- 50 MG TABLETS PM
     Route: 048
  2. ZANAFLEX [Concomitant]
     Indication: MUSCLE SPASTICITY
     Dosage: 0.5 MG A.M.; 2 MG P.M.
  3. KLONOPIN [Concomitant]
     Indication: CONVULSION

REACTIONS (4)
  - ACCIDENTAL OVERDOSE [None]
  - DRUG DISPENSING ERROR [None]
  - HYPOTHERMIA [None]
  - LETHARGY [None]
